FAERS Safety Report 4707859-9 (Version None)
Quarter: 2005Q3

REPORT INFORMATION
  Report Type: 
  Country: None (occurrence: None)
  Receive Date: 20050705
  Receipt Date: 20050705
  Transmission Date: 20060218
  Serious: Yes (Death)
  Sender: FDA-Public Use
  Company Number: None

PATIENT
  Age: 17 Year
  Sex: Female
  Weight: 63.5036 kg

DRUGS (2)
  1. TUSSIN-DM SYRUP    NONE [Suspect]
     Indication: COUGH
     Dosage: TABLESPOON   EVERY 4 HOURS   ORAL
     Route: 048
     Dates: start: 20050422, end: 20050426
  2. TUSSIN-DM SYRUP    NONE [Suspect]
     Indication: RESPIRATORY TRACT CONGESTION
     Dosage: TABLESPOON   EVERY 4 HOURS   ORAL
     Route: 048
     Dates: start: 20050422, end: 20050426

REACTIONS (4)
  - ACCIDENTAL DEATH [None]
  - BRONCHOPNEUMONIA [None]
  - DRUG TOXICITY [None]
  - LOSS OF CONSCIOUSNESS [None]
